FAERS Safety Report 5212144-5 (Version None)
Quarter: 2007Q1

REPORT INFORMATION
  Report Type: 
  Country: None (occurrence: None)
  Receive Date: 20070118
  Receipt Date: 20070111
  Transmission Date: 20070707
  Serious: Yes (Hospitalization)
  Sender: FDA-Public Use
  Company Number: US-SANOFI-SYNTHELABO-F03200700012

PATIENT
  Sex: Male

DRUGS (5)
  1. OXALIPLATIN [Suspect]
     Indication: COLORECTAL CANCER
     Route: 042
  2. BEVACIZUMAB [Concomitant]
     Route: 042
  3. FOLINIC ACID [Concomitant]
     Route: 042
  4. FLUOROURACIL [Suspect]
     Indication: COLORECTAL CANCER
     Route: 042
  5. PANITUMUMAB [Suspect]
     Indication: COLORECTAL CANCER
     Route: 042
     Dates: start: 20051220

REACTIONS (2)
  - FEBRILE NEUTROPENIA [None]
  - HYPOMAGNESAEMIA [None]
